FAERS Safety Report 8428876-1 (Version None)
Quarter: 2012Q2

REPORT INFORMATION
  Report Type: 
  Country: None (occurrence: None)
  Receive Date: 20120524
  Receipt Date: 20120524
  Transmission Date: 20120825
  Serious: Yes (Hospitalization)
  Sender: FDA-Public Use
  Company Number: 2012SP028246

PATIENT
  Sex: Male

DRUGS (1)
  1. POSACONAZOLE [Suspect]
     Indication: ANTIFUNGAL PROPHYLAXIS
     Dosage: ;UNK;

REACTIONS (1)
  - GASTROINTESTINAL HAEMORRHAGE [None]
